FAERS Safety Report 25620765 (Version 1)
Quarter: 2025Q3

REPORT INFORMATION
  Report Type: Report from Study
  Country: US (occurrence: US)
  Receive Date: 20250730
  Receipt Date: 20250730
  Transmission Date: 20251021
  Serious: No
  Sender: ACADIA PHARMACEUTICALS
  Company Number: US-ACADIA PHARMACEUTICALS INC.-ACA-2025-PIM-008703

PATIENT
  Sex: Male

DRUGS (19)
  1. NUPLAZID [Suspect]
     Active Substance: PIMAVANSERIN TARTRATE
     Indication: Parkinson^s disease
     Dosage: 34 MILLIGRAM, QD
     Route: 048
     Dates: start: 20230210
  2. ALBUTEROL SULFATE [Concomitant]
     Active Substance: ALBUTEROL SULFATE
  3. AMLODIPINE [Concomitant]
     Active Substance: AMLODIPINE BESYLATE
  4. ATORVASTATIN [Concomitant]
     Active Substance: ATORVASTATIN
  5. DEXTRIN\WHEAT [Concomitant]
     Active Substance: ICODEXTRIN\WHEAT
  6. CALCIUM CITRATE\VITAMIN D [Concomitant]
     Active Substance: CALCIUM CITRATE\VITAMIN D
  7. CARBIDOPA\LEVODOPA [Concomitant]
     Active Substance: CARBIDOPA\LEVODOPA
  8. DONEPEZIL [Concomitant]
     Active Substance: DONEPEZIL
  9. EPIPEN [Concomitant]
     Active Substance: EPINEPHRINE
  10. FAMOTIDINE [Concomitant]
     Active Substance: FAMOTIDINE
  11. FLONASE ALLERGY RELIEF [Concomitant]
     Active Substance: FLUTICASONE PROPIONATE
  12. MAGNESIUM [Concomitant]
     Active Substance: MAGNESIUM
  13. MIRALAX [Concomitant]
     Active Substance: POLYETHYLENE GLYCOL 3350
  14. VITAMINS [Concomitant]
     Active Substance: VITAMINS
  15. OFLOXACIN [Concomitant]
     Active Substance: OFLOXACIN
  16. PROBIOTICS [PROBIOTICS NOS] [Concomitant]
  17. SENNA LEAF [Concomitant]
     Active Substance: SENNA LEAF
  18. TADALAFIL [Concomitant]
     Active Substance: TADALAFIL
  19. TYLENOL [Concomitant]
     Active Substance: ACETAMINOPHEN

REACTIONS (1)
  - Condition aggravated [Unknown]
